FAERS Safety Report 15104068 (Version 2)
Quarter: 2018Q3

REPORT INFORMATION
  Report Type: Report from Study
  Country: US (occurrence: US)
  Receive Date: 20180703
  Receipt Date: 20180713
  Transmission Date: 20181010
  Serious: Yes (Other)
  Sender: FDA-Public Use
  Company Number: US-MALLINCKRODT-T201802066

PATIENT
  Sex: Female
  Weight: 75 kg

DRUGS (2)
  1. REPOSITORY CORTICOTROPIN INJECTION [Suspect]
     Active Substance: CORTICOTROPIN
     Indication: SARCOIDOSIS
     Dosage: 80 UNITS / 1 ML EVERY 3 DAYS / EVERY 72 HOURS
     Route: 058
     Dates: start: 20180202
  2. REPOSITORY CORTICOTROPIN INJECTION [Suspect]
     Active Substance: CORTICOTROPIN
     Dosage: 80 UNITS / 1 ML EVERY 3 DAYS / EVERY 72 HOURS
     Route: 058
     Dates: start: 20180222

REACTIONS (12)
  - Hypertension [Not Recovered/Not Resolved]
  - Rash [Unknown]
  - Dry eye [Unknown]
  - Muscular weakness [Unknown]
  - Rash macular [Unknown]
  - Anxiety [Unknown]
  - Diabetes mellitus [Not Recovered/Not Resolved]
  - Pruritus [Unknown]
  - Visual impairment [Unknown]
  - Somnolence [Not Recovered/Not Resolved]
  - Injection site bruising [Unknown]
  - Menstrual disorder [Unknown]
